FAERS Safety Report 9303969 (Version 1)
Quarter: 2013Q2

REPORT INFORMATION
  Report Type: Spontaneous
  Country: GR (occurrence: GR)
  Receive Date: 20130522
  Receipt Date: 20130522
  Transmission Date: 20140414
  Serious: Yes (Disabling)
  Sender: FDA-Public Use
  Company Number: PHHY2013GR049315

PATIENT
  Age: 55 Year
  Sex: Female

DRUGS (2)
  1. OXALIPLATIN [Suspect]
     Indication: RECTAL CANCER
     Route: 042
  2. CAPECITABINE [Suspect]
     Indication: RECTAL CANCER
     Route: 048

REACTIONS (10)
  - Myopathy toxic [Recovering/Resolving]
  - Left ventricular failure [Recovering/Resolving]
  - Demyelinating polyneuropathy [Recovering/Resolving]
  - Hypersensitivity [Recovering/Resolving]
  - Ejection fraction decreased [Recovering/Resolving]
  - Muscular weakness [Recovering/Resolving]
  - Paraesthesia [Recovering/Resolving]
  - Dysaesthesia [Recovering/Resolving]
  - Paraplegia [Recovering/Resolving]
  - Pain in extremity [Recovering/Resolving]
